FAERS Safety Report 25526989 (Version 7)
Quarter: 2025Q4

REPORT INFORMATION
  Report Type: Report from Study
  Country: JP (occurrence: JP)
  Receive Date: 20250708
  Receipt Date: 20251117
  Transmission Date: 20260117
  Serious: Yes (Hospitalization)
  Sender: ABBVIE
  Company Number: JP-ABBVIE-6352135

PATIENT
  Age: 62 Year
  Sex: Female

DRUGS (4)
  1. VYALEV [Suspect]
     Active Substance: FOSCARBIDOPA\FOSLEVODOPA
     Indication: Parkinson^s disease
     Dosage: 3.47 ML/DAY.?LAST ADMIN DATE: 2025
     Route: 058
     Dates: start: 20250627
  2. VYALEV [Suspect]
     Active Substance: FOSCARBIDOPA\FOSLEVODOPA
     Dosage: 0.15
     Route: 058
     Dates: start: 2025, end: 2025
  3. VYALEV [Suspect]
     Active Substance: FOSCARBIDOPA\FOSLEVODOPA
     Dosage: 0.16
     Route: 058
     Dates: start: 2025
  4. AMANTADINE HYDROCHLORIDE [Concomitant]
     Active Substance: AMANTADINE HYDROCHLORIDE
     Indication: Parkinson^s disease
     Route: 048

REACTIONS (7)
  - Psychiatric symptom [Recovered/Resolved]
  - Infusion site discharge [Unknown]
  - Vomiting [Recovering/Resolving]
  - Feeling abnormal [Recovering/Resolving]
  - Infusion site reaction [Recovering/Resolving]
  - Infusion site induration [Unknown]
  - Nausea [Recovering/Resolving]

NARRATIVE: CASE EVENT DATE: 20250101
